FAERS Safety Report 5623580-7 (Version None)
Quarter: 2008Q1

REPORT INFORMATION
  Report Type: 
  Country: None (occurrence: None)
  Receive Date: 20080212
  Receipt Date: 20080202
  Transmission Date: 20080703
  Serious: Yes (Hospitalization)
  Sender: FDA-Public Use
  Company Number: US-ELI_LILLY_AND_COMPANY-US200802000472

PATIENT
  Sex: Female
  Weight: 92.517 kg

DRUGS (11)
  1. BYETTA [Suspect]
     Dosage: 5 UG, DAILY (1/D)
     Route: 058
     Dates: start: 20070701, end: 20070701
  2. BYETTA [Suspect]
     Dosage: 5 UG, 2/D
     Route: 058
     Dates: start: 20070701, end: 20070701
  3. BYETTA [Suspect]
     Dosage: 5 UG, 2/D
     Route: 058
     Dates: start: 20080129
  4. ACTOS [Concomitant]
     Dosage: 45 MG, UNK
     Route: 048
  5. AMARYL [Concomitant]
     Dosage: 4 MG, UNK
     Route: 048
  6. LISINOPRIL [Concomitant]
     Indication: HYPERTENSION
     Dosage: 20 MG, AS NEEDED
     Route: 048
  7. ASPIRIN [Concomitant]
     Dosage: 81 MG, DAILY (1/D)
     Route: 048
  8. NIACIN [Concomitant]
     Indication: BLOOD CHOLESTEROL
  9. DARVOCET /00220901/ [Concomitant]
     Indication: PAIN
  10. FLEXERIL [Concomitant]
     Indication: PAIN
  11. HYDROCHLOROTHIAZIDE [Concomitant]
     Indication: HYPERTENSION

REACTIONS (5)
  - BLOOD PRESSURE DECREASED [None]
  - HEADACHE [None]
  - NAUSEA [None]
  - RECTAL HAEMORRHAGE [None]
  - SOMNOLENCE [None]
